FAERS Safety Report 22118970 (Version 2)
Quarter: 2025Q1

REPORT INFORMATION
  Report Type: Spontaneous
  Country: US (occurrence: US)
  Receive Date: 20230321
  Receipt Date: 20250108
  Transmission Date: 20250409
  Serious: No
  Sender: SANOFI AVENTIS
  Company Number: US-SA-SAC20230320001562

PATIENT
  Sex: Female

DRUGS (11)
  1. DUPIXENT [Suspect]
     Active Substance: DUPILUMAB
     Indication: Eosinophilic oesophagitis
     Dosage: 300 MG, QW
     Route: 058
  2. SUMATRIPTAN [Concomitant]
     Active Substance: SUMATRIPTAN
  3. METHYLPREDNISOLONE [Concomitant]
     Active Substance: METHYLPREDNISOLONE
  4. ONDANSETRON [Concomitant]
     Active Substance: ONDANSETRON
  5. TOPIRAMATE [Concomitant]
     Active Substance: TOPIRAMATE
  6. NURTEC ODT [Concomitant]
     Active Substance: RIMEGEPANT SULFATE
  7. RIZATRIPTAN [Concomitant]
     Active Substance: RIZATRIPTAN
  8. TOPAMAX [Concomitant]
     Active Substance: TOPIRAMATE
  9. FAMOTIDINE [Concomitant]
     Active Substance: FAMOTIDINE
  10. CITALOPRAM [Concomitant]
     Active Substance: CITALOPRAM
  11. CELEXAL [Concomitant]

REACTIONS (6)
  - Paraesthesia [Unknown]
  - Injection site hypersensitivity [Unknown]
  - Impaired quality of life [Unknown]
  - Injection site erythema [Unknown]
  - Injection site pruritus [Unknown]
  - Drug ineffective [Unknown]
